FAERS Safety Report 16773023 (Version 1)
Quarter: 2019Q3

REPORT INFORMATION
  Report Type: Spontaneous
  Country: DE (occurrence: DE)
  Receive Date: 20190904
  Receipt Date: 20190904
  Transmission Date: 20191005
  Serious: Yes (Hospitalization)
  Sender: FDA-Public Use
  Company Number: DE-ANIPHARMA-2019-DE-000119

PATIENT
  Sex: 0

DRUGS (15)
  1. CANDESARTAN. [Suspect]
     Active Substance: CANDESARTAN
     Indication: PRODUCT USED FOR UNKNOWN INDICATION
     Dosage: ONCE A DAY
     Route: 048
  2. SPIRIVA [Concomitant]
     Active Substance: TIOTROPIUM BROMIDE MONOHYDRATE
     Dosage: UNK, 2-0-0-0
     Route: 065
  3. AMLODIPIN [Suspect]
     Active Substance: AMLODIPINE BESYLATE
     Dosage: UNK, TWO TIMES A DAY
     Route: 048
     Dates: start: 20190720
  4. SIMVASTATIN. [Suspect]
     Active Substance: SIMVASTATIN
     Dosage: UNKNOWN, ONCE A DAY
     Route: 048
  5. ACE INHIBITOR, PLAIN [Suspect]
     Active Substance: UNSPECIFIED INGREDIENT
     Dosage: UNKNOWN, ONCE A DAY
     Route: 048
     Dates: start: 20190720
  6. MORPHINE [Concomitant]
     Active Substance: MORPHINE
     Dosage: UNK, TWO TIMES A DAY
     Route: 065
  7. FOSTER [Concomitant]
     Active Substance: BECLOMETHASONE\FORMOTEROL
     Dosage: UNK, TWO TIMES A DAY
     Route: 065
  8. COLECALCIFEROL [Suspect]
     Active Substance: CHOLECALCIFEROL
     Dosage: UNKNOWN EVERY WEEK
     Route: 055
  9. BERODUAL [Suspect]
     Active Substance: FENOTEROL HYDROBROMIDE\IPRATROPIUM BROMIDE
     Dosage: UNKNOWN IF NEEDED
     Route: 065
  10. ACETYLSALICYLIC ACID [Suspect]
     Active Substance: ASPIRIN
     Dosage: UNKNOWN, ONCE A DAY
     Route: 048
  11. METAMIZOLE [Suspect]
     Active Substance: METAMIZOLE
     Dosage: UNKNOWN, 1/2-0-1/2-0
     Route: 048
  12. SPIRIVA RESPIMAT [Suspect]
     Active Substance: TIOTROPIUM BROMIDE
     Dosage: UNKNOWN, TWO TIMES A DAY
     Route: 065
  13. ALENDRONATE [Suspect]
     Active Substance: ALENDRONATE SODIUM
     Dosage: UNK, BEGINNING OF 2017 (STATED AS SINCE 2.5 YEARS)
     Route: 048
     Dates: start: 2017
  14. MOVICOL [Suspect]
     Active Substance: POLYETHYLENE GLYCOL 3350\POTASSIUM CHLORIDE\SODIUM BICARBONATE\SODIUM CHLORIDE
     Dosage: UNK
     Route: 065
  15. ROFLUMILAST. [Suspect]
     Active Substance: ROFLUMILAST
     Dosage: UNKNOWN, ONCE A DAY
     Route: 048

REACTIONS (4)
  - Dizziness [Unknown]
  - Cerebrovascular accident [Recovered/Resolved]
  - Nausea [Unknown]
  - Drug interaction [Unknown]
